FAERS Safety Report 4574478-7 (Version None)
Quarter: 2005Q1

REPORT INFORMATION
  Report Type: 
  Country: None (occurrence: None)
  Receive Date: 20050208
  Receipt Date: 20020501
  Transmission Date: 20050727
  Serious: Yes (Disabling)
  Sender: FDA-Public Use
  Company Number: US-GLAXOSMITHKLINE-A0367824A

PATIENT
  Sex: Female

DRUGS (1)
  1. PAXIL [Suspect]
     Indication: DEPRESSION

REACTIONS (12)
  - AGGRESSION [None]
  - AGITATION [None]
  - DEPENDENCE [None]
  - DEPRESSED MOOD [None]
  - DRUG WITHDRAWAL SYNDROME [None]
  - FEELING OF DESPAIR [None]
  - HYPERHIDROSIS [None]
  - ILL-DEFINED DISORDER [None]
  - MALAISE [None]
  - PERFORMANCE STATUS DECREASED [None]
  - SOCIAL AVOIDANT BEHAVIOUR [None]
  - TREMOR [None]
